FAERS Safety Report 7390139-3 (Version None)
Quarter: 2011Q2

REPORT INFORMATION
  Report Type: 
  Country: None (occurrence: None)
  Receive Date: 20110401
  Receipt Date: 20110321
  Transmission Date: 20111010
  Serious: Yes (Other)
  Sender: FDA-Public Use
  Company Number: PHHY2011CA16015

PATIENT
  Sex: Female

DRUGS (1)
  1. ACLASTA [Suspect]
     Indication: OSTEOPOROSIS
     Dosage: 5 MG, UNK
     Route: 042
     Dates: start: 20110211

REACTIONS (8)
  - FIBROMYALGIA [None]
  - BACK PAIN [None]
  - CHEST PAIN [None]
  - BONE PAIN [None]
  - MUSCULOSKELETAL PAIN [None]
  - FLANK PAIN [None]
  - INSOMNIA [None]
  - MUSCULOSKELETAL CHEST PAIN [None]
